FAERS Safety Report 10257571 (Version 1)
Quarter: 2014Q2

REPORT INFORMATION
  Report Type: Spontaneous
  Country: GB (occurrence: GB)
  Receive Date: 20140625
  Receipt Date: 20140625
  Transmission Date: 20141212
  Serious: Yes (Hospitalization)
  Sender: FDA-Public Use
  Company Number: PHFR2014GB004417

PATIENT
  Age: 40 Year
  Sex: Male

DRUGS (2)
  1. CLOZARIL [Suspect]
     Indication: SCHIZOPHRENIA
     Dosage: UNK
     Route: 048
     Dates: start: 20140120
  2. CLOZARIL [Suspect]
     Dosage: 2000 MG (20 X 100MG TABLETS)
     Route: 048
     Dates: start: 20140509

REACTIONS (2)
  - Intentional overdose [Unknown]
  - Neutrophil count increased [Unknown]
